FAERS Safety Report 4343597-2 (Version None)
Quarter: 2004Q2

REPORT INFORMATION
  Report Type: 
  Country: None (occurrence: None)
  Receive Date: 20040419
  Receipt Date: 20040409
  Transmission Date: 20050107
  Serious: Yes (Death, Life-Threatening, Hospitalization)
  Sender: FDA-Public Use
  Company Number: 2004208138US

PATIENT
  Age: 82 Year
  Sex: Male

DRUGS (2)
  1. CAMPTOSAR [Suspect]
     Indication: NEOPLASM MALIGNANT
     Dosage: 124 MG, CYCLIC, IV
     Route: 042
     Dates: start: 20040305, end: 20040312
  2. COMPARATOR-DOCETAXEL (DOCETAXEL) INJECTION [Suspect]
     Indication: NEOPLASM MALIGNANT
     Dosage: 72 MG, CYCLIC, IV
     Route: 042
     Dates: start: 20040305, end: 20040312

REACTIONS (6)
  - ACQUIRED TRACHEO-OESOPHAGEAL FISTULA [None]
  - DISEASE PROGRESSION [None]
  - NEOPLASM MALIGNANT [None]
  - NEUTROPENIC SEPSIS [None]
  - PLEURAL EFFUSION [None]
  - PNEUMONIA ASPIRATION [None]
